FAERS Safety Report 6633083-9 (Version None)
Quarter: 2010Q1

REPORT INFORMATION
  Report Type: 
  Country: None (occurrence: None)
  Receive Date: 20100310
  Receipt Date: 20100222
  Transmission Date: 20100710
  Serious: Yes (Hospitalization, Other)
  Sender: FDA-Public Use
  Company Number: AUR-APL-2010-00556

PATIENT
  Age: 39 Year
  Sex: Female

DRUGS (5)
  1. SERTRALINE HCL [Suspect]
     Dosage: 100MG, DAILY,
  2. FENTANYL [Suspect]
     Indication: OESOPHAGOGASTRODUODENOSCOPY
     Dosage: 25UG, 2 DOSES,
  3. MIDAZOLAM HCL [Suspect]
     Indication: PREOPERATIVE CARE
     Dosage: 1MG - 2 DOSES -
  4. OCTREOTIDE ACETATE [Suspect]
     Dosage: IV
     Route: 042
  5. PANTOPRAZOLE [Suspect]
     Dosage: IV
     Route: 042

REACTIONS (10)
  - AMMONIA INCREASED [None]
  - CONVULSION [None]
  - DRUG INTERACTION [None]
  - EYE MOVEMENT DISORDER [None]
  - HYPERHIDROSIS [None]
  - MUSCLE RIGIDITY [None]
  - PYREXIA [None]
  - RHABDOMYOLYSIS [None]
  - SEROTONIN SYNDROME [None]
  - SOMNOLENCE [None]
